FAERS Safety Report 9646533 (Version 3)
Quarter: 2014Q2

REPORT INFORMATION
  Report Type: Report from Study
  Country: US (occurrence: US)
  Receive Date: 20131025
  Receipt Date: 20140623
  Transmission Date: 20141212
  Serious: Yes (Other)
  Sender: FDA-Public Use
  Company Number: US-TEVA-440178USA

PATIENT
  Age: 61 Year
  Sex: Male

DRUGS (12)
  1. BENDAMUSTINE [Suspect]
     Indication: CHRONIC LYMPHOCYTIC LEUKAEMIA
     Route: 042
     Dates: start: 20130910
  2. BENDAMUSTINE [Suspect]
     Route: 042
     Dates: start: 20131008
  3. RITUXIMAB [Suspect]
     Indication: CHRONIC LYMPHOCYTIC LEUKAEMIA
     Route: 042
     Dates: start: 20130909
  4. RITUXIMAB [Suspect]
     Route: 042
     Dates: start: 20131008
  5. RITUXIMAB [Suspect]
     Route: 042
     Dates: start: 20130910, end: 20131008
  6. RITUXIMAB [Suspect]
     Route: 042
     Dates: start: 20131013
  7. IBRUTINIB/PLACEBO [Suspect]
     Indication: CHRONIC LYMPHOCYTIC LEUKAEMIA
     Dosage: 420 MILLIGRAM DAILY;
     Route: 048
     Dates: start: 20130910, end: 20131008
  8. IBRUTINIB/PLACEBO [Suspect]
     Dosage: 280 MILLIGRAM DAILY;
     Route: 048
     Dates: start: 20131013
  9. FENOFIBRATE [Concomitant]
     Dosage: 200 MILLIMOL DAILY;
     Route: 048
  10. MULTIVITAMINS [Concomitant]
     Dosage: 1 DOSAGE FORMS DAILY;
     Route: 048
  11. ACIPHEX [Concomitant]
     Dosage: 40 MILLIGRAM DAILY;
     Route: 048
  12. VIAGRA [Concomitant]
     Route: 048

REACTIONS (1)
  - Atrial flutter [Not Recovered/Not Resolved]
